FAERS Safety Report 4816609-7 (Version None)
Quarter: 2005Q4

REPORT INFORMATION
  Report Type: 
  Country: None (occurrence: None)
  Receive Date: 20051028
  Receipt Date: 20051018
  Transmission Date: 20060501
  Serious: Yes (Other)
  Sender: FDA-Public Use
  Company Number: 2005144723

PATIENT
  Sex: Female
  Weight: 65.7716 kg

DRUGS (5)
  1. CELEBREX [Suspect]
     Indication: PAIN
     Dosage: 800 MG (400 MG, 2 IN 1 D), ORAL
     Route: 048
     Dates: start: 19990101
  2. ZOLOFT [Concomitant]
  3. PREMARIN [Concomitant]
  4. KLONOPIN [Concomitant]
  5. CENTRUM (MINERALS NOS, VITAMINS NOS) [Concomitant]

REACTIONS (9)
  - ASTHENIA [None]
  - CONSTIPATION [None]
  - FALL [None]
  - HAEMORRHOIDAL HAEMORRHAGE [None]
  - HIP SWELLING [None]
  - HYPERTENSION [None]
  - NODULE ON EXTREMITY [None]
  - OEDEMA PERIPHERAL [None]
  - POLYP [None]
